FAERS Safety Report 11261285 (Version 4)
Quarter: 2016Q1

REPORT INFORMATION
  Report Type: Spontaneous
  Country: US (occurrence: US)
  Receive Date: 20150710
  Receipt Date: 20160104
  Transmission Date: 20160525
  Serious: No
  Sender: FDA-Public Use
  Company Number: US-PFIZER INC-2015229033

PATIENT
  Age: 98 Year
  Sex: Female

DRUGS (3)
  1. CELEBREX [Suspect]
     Active Substance: CELECOXIB
     Indication: ARTHRITIS
     Dosage: 200 MG, 2X/DAY (200MG CAPSULE AT DAWN AND LATE AT NIGHT)
     Dates: start: 1990
  2. TYLENOL [Concomitant]
     Active Substance: ACETAMINOPHEN
     Dosage: UNK
     Dates: start: 1990
  3. SYNTHROID [Concomitant]
     Active Substance: LEVOTHYROXINE SODIUM
     Dosage: UNK
     Dates: start: 1960

REACTIONS (4)
  - Visual acuity reduced [Unknown]
  - Slow response to stimuli [Not Recovered/Not Resolved]
  - Wheelchair user [Unknown]
  - Chromatopsia [Unknown]
